FAERS Safety Report 20122930 (Version 1)
Quarter: 2021Q4

REPORT INFORMATION
  Report Type: Spontaneous
  Country: US (occurrence: US)
  Receive Date: 20211129
  Receipt Date: 20211129
  Transmission Date: 20220303
  Serious: No
  Sender: FDA-Public Use
  Company Number: US-UCBSA-2021020146

PATIENT
  Sex: Female

DRUGS (3)
  1. VIMPAT [Suspect]
     Active Substance: LACOSAMIDE
     Indication: Epilepsy
     Dosage: 50 MILLIGRAM, 2X/DAY (BID)
     Dates: start: 2014
  2. VIMPAT [Suspect]
     Active Substance: LACOSAMIDE
     Indication: Dementia
  3. VIMPAT [Suspect]
     Active Substance: LACOSAMIDE
     Indication: Off label use

REACTIONS (3)
  - Alopecia [Unknown]
  - Blood thyroid stimulating hormone decreased [Unknown]
  - Off label use [Unknown]

NARRATIVE: CASE EVENT DATE: 20140101
